FAERS Safety Report 4909618-0 (Version None)
Quarter: 2006Q1

REPORT INFORMATION
  Report Type: 
  Country: None (occurrence: None)
  Receive Date: 20060213
  Receipt Date: 20051020
  Transmission Date: 20060701
  Serious: Yes (Hospitalization, Other)
  Sender: FDA-Public Use
  Company Number: US-MERCK-0510USA08454

PATIENT
  Age: 64 Year
  Sex: Female

DRUGS (9)
  1. VIOXX [Suspect]
     Route: 048
     Dates: start: 20000311, end: 20040501
  2. AREDIA [Concomitant]
     Route: 065
  3. ALLEGRA [Concomitant]
     Route: 065
  4. ZOCOR [Concomitant]
     Route: 065
  5. LASIX [Concomitant]
     Route: 065
  6. NORVASC [Concomitant]
     Route: 065
  7. IMIPRAMINE HYDROCHLORIDE [Concomitant]
     Route: 065
  8. TRAZODONE HYDROCHLORIDE [Concomitant]
     Route: 065
  9. PRILOSEC [Concomitant]
     Route: 065

REACTIONS (7)
  - CAROTID ARTERY DISEASE [None]
  - CEREBROVASCULAR ACCIDENT [None]
  - ILEAL STENOSIS [None]
  - MIGRAINE [None]
  - VITREOUS FLOATERS [None]
  - WEIGHT INCREASED [None]
  - WOUND INFECTION [None]
